FAERS Safety Report 21785007 (Version 1)
Quarter: 2022Q4

REPORT INFORMATION
  Report Type: Spontaneous
  Country: US (occurrence: US)
  Receive Date: 20221227
  Receipt Date: 20221227
  Transmission Date: 20230113
  Serious: Yes (Other)
  Sender: FDA-Public Use
  Company Number: US-PFIZER INC-PV202200130286

PATIENT

DRUGS (2)
  1. HALCION [Suspect]
     Active Substance: TRIAZOLAM
     Indication: Insomnia
     Dosage: UNK
  2. HALCION [Suspect]
     Active Substance: TRIAZOLAM
     Indication: Panic disorder

REACTIONS (3)
  - Craniocerebral injury [Unknown]
  - Drug dependence [Unknown]
  - Therapeutic response unexpected [Unknown]
